FAERS Safety Report 9867436 (Version 1)
Quarter: 2014Q1

REPORT INFORMATION
  Report Type: Spontaneous
  Country: US (occurrence: None)
  Receive Date: 20140203
  Receipt Date: 20140203
  Transmission Date: 20141002
  Serious: Yes (Death)
  Sender: FDA-Public Use
  Company Number: None

PATIENT
  Age: 15 Year
  Sex: Female
  Weight: 49.2 kg

DRUGS (14)
  1. DAUNORUBICIN [Suspect]
  2. PEG-L-ASPARAGINASE (PEGASPARGASE, ONCOSPAR) [Suspect]
  3. PREDNISONE [Suspect]
  4. VINCRISTINE SULFATE [Suspect]
  5. DOPAMINE [Concomitant]
  6. DEXTROSE [Concomitant]
  7. LORAZEPAM [Concomitant]
  8. LPCH MOUTHWASH CPD MIX [Concomitant]
  9. ACETAMINOPHEN [Concomitant]
  10. ACETYLCYSTEINE [Concomitant]
  11. ALBUMIN HUMAN (ALBUMIN 25%) [Concomitant]
  12. AMIKACIN [Concomitant]
  13. AMINOPHYLLINE [Concomitant]
  14. DIPHEHYDRAMINE [Concomitant]

REACTIONS (10)
  - Abdominal pain [None]
  - Tachycardia [None]
  - Fatigue [None]
  - Abdominal distension [None]
  - Constipation [None]
  - Faecal vomiting [None]
  - Purpura [None]
  - Cardiac arrest [None]
  - Shock [None]
  - Cardio-respiratory arrest [None]
